FAERS Safety Report 23878453 (Version 3)
Quarter: 2024Q3

REPORT INFORMATION
  Report Type: Spontaneous
  Country: AU (occurrence: AU)
  Receive Date: 20240521
  Receipt Date: 20240706
  Transmission Date: 20241016
  Serious: Yes (Other)
  Sender: ROCHE
  Company Number: AU-ROCHE-3561637

PATIENT
  Age: 40 Year
  Sex: Female

DRUGS (1)
  1. OCREVUS [Suspect]
     Active Substance: OCRELIZUMAB
     Indication: Relapsing-remitting multiple sclerosis
     Dosage: SUBSEQUENT DOSE ON 02/MAY/2024
     Route: 065
     Dates: start: 20191014

REACTIONS (4)
  - Rash [Recovered/Resolved]
  - Swelling face [Recovered/Resolved]
  - Skin tightness [Recovered/Resolved]
  - Dysphonia [Recovered/Resolved]

NARRATIVE: CASE EVENT DATE: 20240502
